FAERS Safety Report 12986162 (Version 1)
Quarter: 2016Q4

REPORT INFORMATION
  Report Type: Report from Study
  Country: US (occurrence: US)
  Receive Date: 20161130
  Receipt Date: 20161130
  Transmission Date: 20170207
  Serious: No
  Sender: FDA-Public Use
  Company Number: US-AMGEN-USASL2016165739

PATIENT
  Age: 54 Year
  Sex: Female

DRUGS (1)
  1. ENBREL [Suspect]
     Active Substance: ETANERCEPT
     Indication: ANKYLOSING SPONDYLITIS
     Dosage: UNK
     Route: 065

REACTIONS (7)
  - Throat irritation [Unknown]
  - Headache [Unknown]
  - Influenza like illness [Unknown]
  - Peripheral swelling [Unknown]
  - Paraesthesia [Unknown]
  - Dizziness [Unknown]
  - Diarrhoea [Unknown]
